FAERS Safety Report 13487033 (Version 3)
Quarter: 2017Q2

REPORT INFORMATION
  Report Type: Spontaneous
  Country: US (occurrence: US)
  Receive Date: 20170426
  Receipt Date: 20170612
  Transmission Date: 20170830
  Serious: Yes (Other)
  Sender: FDA-Public Use
  Company Number: US-JNJFOC-20170405482

PATIENT
  Sex: Female
  Weight: 58.97 kg

DRUGS (2)
  1. RISPERIDONE M-TAB [Suspect]
     Active Substance: RISPERIDONE
     Indication: SCHIZOPHRENIA
     Route: 048
     Dates: start: 2007, end: 2009
  2. RISPERDAL M-TAB [Suspect]
     Active Substance: RISPERIDONE
     Indication: SCHIZOPHRENIA
     Route: 048
     Dates: start: 2009

REACTIONS (7)
  - Hospitalisation [Unknown]
  - Sleep disorder [Recovered/Resolved]
  - Thinking abnormal [Recovered/Resolved]
  - Drug dose omission [Unknown]
  - Product availability issue [Unknown]
  - Swollen tongue [Recovered/Resolved]
  - Hypersensitivity [Unknown]
